FAERS Safety Report 6890613-X (Version None)
Quarter: 2010Q3

REPORT INFORMATION
  Report Type: 
  Country: None (occurrence: None)
  Receive Date: 20100731
  Receipt Date: 20090105
  Transmission Date: 20110219
  Serious: No
  Sender: FDA-Public Use
  Company Number: US-PFIZER INC-2009151567

PATIENT
  Sex: Male
  Weight: 66 kg

DRUGS (4)
  1. LIPITOR [Suspect]
     Dosage: 40 MG, 1X/DAY
     Route: 048
  2. NIASPAN [Suspect]
     Indication: LOW DENSITY LIPOPROTEIN INCREASED
     Dosage: 2000 MG, 1X/DAY
     Route: 048
     Dates: start: 20030101
  3. ACETYLSALICYLIC ACID [Concomitant]
     Dosage: UNK
     Route: 048
  4. RAMIPRIL [Concomitant]
     Dosage: UNK
     Route: 048

REACTIONS (1)
  - HEPATIC ENZYME INCREASED [None]
